FAERS Safety Report 10479982 (Version 1)
Quarter: 2014Q3

REPORT INFORMATION
  Report Type: Spontaneous
  Country: US (occurrence: None)
  Receive Date: 20140926
  Receipt Date: 20140926
  Transmission Date: 20150326
  Serious: Yes (Life-Threatening, Hospitalization, Disabling)
  Sender: FDA-Public Use
  Company Number: None

PATIENT
  Age: 42 Year
  Sex: Female
  Weight: 71.67 kg

DRUGS (1)
  1. XARELTO [Suspect]
     Active Substance: RIVAROXABAN
     Indication: ANTICOAGULANT THERAPY
     Dosage: 1 TAB PER DAY ONCE DAILY TAKEN BY MOUTH
     Route: 048
     Dates: start: 20130713, end: 20140421

REACTIONS (2)
  - Myocardial infarction [None]
  - International normalised ratio increased [None]

NARRATIVE: CASE EVENT DATE: 20140422
